FAERS Safety Report 4597326-8 (Version None)
Quarter: 2005Q1

REPORT INFORMATION
  Report Type: 
  Country: None (occurrence: None)
  Receive Date: 20050225
  Receipt Date: 20050225
  Transmission Date: 20050727
  Serious: Yes (Disabling, Other)
  Sender: FDA-Public Use
  Company Number: None

PATIENT
  Age: 66 Year
  Sex: Female
  Weight: 65.7716 kg

DRUGS (5)
  1. FAMVIR [Suspect]
     Indication: HERPES VIRUS INFECTION
     Dosage: 500 MG  3 X DAY 7 DAYS  ORAL
     Route: 048
     Dates: start: 20010115, end: 20041217
  2. FAMVIR [Suspect]
     Indication: HERPES ZOSTER
     Dosage: 500 MG  3 X DAY 7 DAYS  ORAL
     Route: 048
     Dates: start: 20010115, end: 20041217
  3. TOPOROL XL [Concomitant]
  4. NORVASC [Concomitant]
  5. PREMARIN [Concomitant]

REACTIONS (8)
  - BLISTER [None]
  - DRUG EFFECT DECREASED [None]
  - HYPERAESTHESIA [None]
  - IMPAIRED HEALING [None]
  - MALAISE [None]
  - PHARMACEUTICAL PRODUCT COMPLAINT [None]
  - PHARMACEUTICAL PRODUCT COUNTERFEIT [None]
  - PRURITUS [None]
